FAERS Safety Report 19666106 (Version 2)
Quarter: 2021Q3

REPORT INFORMATION
  Report Type: Spontaneous
  Country: US (occurrence: US)
  Receive Date: 20210805
  Receipt Date: 20210818
  Transmission Date: 20211014
  Serious: No
  Sender: FDA-Public Use
  Company Number: US-AMGEN INC.-USASP2021116929

PATIENT
  Sex: Female

DRUGS (1)
  1. AIMOVIG [Suspect]
     Active Substance: ERENUMAB-AOOE
     Indication: PRODUCT USED FOR UNKNOWN INDICATION
     Dosage: 140 MILLIGRAM, QMO
     Route: 065
     Dates: start: 201909

REACTIONS (9)
  - Musculoskeletal disorder [Unknown]
  - Weight decreased [Unknown]
  - COVID-19 [Unknown]
  - Fall [Unknown]
  - Post-acute COVID-19 syndrome [Unknown]
  - Adverse drug reaction [Unknown]
  - Contusion [Unknown]
  - Vertigo [Unknown]
  - Cerebral disorder [Unknown]
